FAERS Safety Report 8433290-9 (Version None)
Quarter: 2012Q2

REPORT INFORMATION
  Report Type: 
  Country: None (occurrence: None)
  Receive Date: 20120613
  Receipt Date: 20120607
  Transmission Date: 20120825
  Serious: Yes (Hospitalization)
  Sender: FDA-Public Use
  Company Number: CL-BAYER-2012-043206

PATIENT
  Age: 65 Year
  Sex: Male
  Weight: 82 kg

DRUGS (32)
  1. GLAFORNIL [Concomitant]
     Indication: DIABETES MELLITUS
     Dosage: 750 MG
     Dates: start: 20080701, end: 20110131
  2. DIMETICONE [Concomitant]
     Indication: ABDOMINAL DISTENSION
     Dosage: 200 MG
     Dates: start: 20101119, end: 20101121
  3. SPIRONOLACTONE [Concomitant]
     Indication: NEPHROTIC SYNDROME
     Dosage: DAILY DOSE 25 MG
     Route: 048
     Dates: start: 20120502
  4. ZOPICLONE [Concomitant]
     Indication: INSOMNIA
     Dosage: DAILY DOSE 7.5 MG
     Route: 048
     Dates: start: 20120502
  5. ENALAPRIL MALEATE [Concomitant]
     Indication: HYPERTENSION
     Dosage: 20 MG
     Dates: start: 20010301, end: 20110902
  6. ENALAPRIL MALEATE [Concomitant]
     Dosage: 40 MG, QD
     Dates: start: 20110903
  7. OMEPRAZOLE [Concomitant]
     Indication: GASTROINTESTINAL DISORDER
     Dosage: 10 MG
     Dates: start: 19980101, end: 20101104
  8. PREDNISONE TAB [Concomitant]
     Dosage: DAILY DOSE 60 MG
     Route: 048
     Dates: start: 20120502
  9. LOPERAMIDE [Concomitant]
     Indication: PROPHYLAXIS AGAINST DIARRHOEA
     Dosage: 2 MG
     Dates: start: 20110118, end: 20111020
  10. GLAFORNIL [Concomitant]
     Dosage: 500 MG
     Dates: start: 20110201
  11. OPTIRAY 160 [Concomitant]
     Indication: DIAGNOSTIC PROCEDURE
     Dosage: 100 ML PER PROCEDURE
     Dates: start: 20101112, end: 20120410
  12. TAMSULOSIN HCL [Concomitant]
     Indication: PROSTATISM
     Dosage: 1 COMP.QD
     Dates: start: 20110324, end: 20110402
  13. CLOXACILLIN SODIUM [Concomitant]
     Indication: SKIN INFECTION
     Dosage: 1000 MG, QD
     Dates: start: 20110607, end: 20110615
  14. FUROSEMIDE [Concomitant]
     Indication: NEPHROTIC SYNDROME
     Dosage: DAILY DOSE 40 MG
     Route: 048
     Dates: start: 20120502
  15. ATORVASTATIN CALCIUM [Concomitant]
     Indication: NEPHROTIC SYNDROME
     Dosage: DAILY DOSE 40 MG
     Route: 048
     Dates: start: 20120502
  16. CHLORDIAZEPOXIDE [Concomitant]
     Indication: ABDOMINAL DISTENSION
     Dosage: 10 MG
     Dates: start: 20101119, end: 20101121
  17. LOPERAMIDE [Concomitant]
     Indication: DIARRHOEA
     Dosage: 2 MG, PRN
     Dates: start: 20101229
  18. SORAFENIB (RAF KINASE INHIBITOR) [Suspect]
     Indication: HEPATIC NEOPLASM MALIGNANT
     Dosage: 400 MG, BID
     Route: 048
     Dates: start: 20120402, end: 20120510
  19. MILK OF MAGNESIA TAB [Concomitant]
     Indication: ABDOMINAL DISTENSION
     Dosage: 2 CAPS, UNK
     Dates: start: 20101119, end: 20101121
  20. PREDNISONE TAB [Concomitant]
     Indication: DIAGNOSTIC PROCEDURE
     Dosage: 20 MG PER PROCEDURE
     Dates: start: 20101112, end: 20120410
  21. DINAFLEX [Concomitant]
     Indication: ARTHRITIS
     Dosage: 1 PILL, UNK
     Dates: start: 20110726, end: 20110928
  22. LOSARTAN POTASSIUM [Concomitant]
     Indication: NEPHROTIC SYNDROME
     Dosage: DAILY DOSE 50 MG
     Route: 048
     Dates: start: 20120502, end: 20120525
  23. METOCLOPRAMIDE [Concomitant]
     Indication: ABDOMINAL DISTENSION
     Dosage: 10 MG
     Dates: start: 20101119, end: 20101121
  24. FAMOTIDINE [Concomitant]
     Indication: GASTROINTESTINAL DISORDER
     Dosage: 40 MG, QD
     Dates: start: 20101229
  25. ACETAMINOPHEN [Concomitant]
     Indication: HEADACHE
     Dosage: 1 GR
     Dates: start: 20101126, end: 20101130
  26. LOPERAMIDE [Concomitant]
     Dosage: 6 MG, QD
     Dates: start: 20110127, end: 20110908
  27. FERROUS CARBONATE [Concomitant]
     Indication: PROPHYLAXIS
     Dosage: 1 COMP
     Dates: start: 20110726
  28. ACETAMINOPHEN [Concomitant]
     Indication: NEPHROTIC SYNDROME
     Dosage: DAILY DOSE 3 G
     Route: 048
     Dates: start: 20120502
  29. PLACEBO [Suspect]
     Indication: HEPATIC NEOPLASM MALIGNANT
     Dosage: 150 MG/DAY
     Route: 048
     Dates: start: 20120402, end: 20120510
  30. DICLO [DICLOFENAC SODIUM] [Concomitant]
     Indication: OROPHARYNGEAL PAIN
     Dosage: 500 MG
     Dates: start: 20100924, end: 20101119
  31. DOMPERIDONE [Concomitant]
     Indication: GASTROINTESTINAL DISORDER
     Dosage: 30 MG/SOS
     Dates: start: 20101115, end: 20101203
  32. ENALAPRIL MALEATE [Concomitant]
     Indication: NEPHROTIC SYNDROME
     Dosage: DAILY DOSE 10 MG
     Route: 048
     Dates: start: 20120502

REACTIONS (1)
  - NEPHROTIC SYNDROME [None]
